FAERS Safety Report 19151729 (Version 1)
Quarter: 2021Q2

REPORT INFORMATION
  Report Type: Spontaneous
  Country: JP (occurrence: JP)
  Receive Date: 20210419
  Receipt Date: 20210419
  Transmission Date: 20210717
  Serious: No
  Sender: FDA-Public Use
  Company Number: JP-LUPIN PHARMACEUTICALS INC.-2021-04829

PATIENT
  Age: 54 Year
  Sex: Male

DRUGS (3)
  1. IPRAGLIFLOZIN;SITAGLIPTIN [Suspect]
     Active Substance: IPRAGLIFLOZIN L-PROLINE\SITAGLIPTIN PHOSPHATE
     Indication: DIABETIC HEPATOPATHY
     Dosage: UNK
     Route: 048
  2. METFORMIN [Suspect]
     Active Substance: METFORMIN HYDROCHLORIDE
     Indication: DIABETIC HEPATOPATHY
     Dosage: 1000 MILLIGRAM
     Route: 048
  3. GLIMEPIRIDE. [Suspect]
     Active Substance: GLIMEPIRIDE
     Indication: DIABETIC HEPATOPATHY
     Dosage: 1 MILLIGRAM
     Route: 048

REACTIONS (1)
  - Hypoglycaemia [Recovering/Resolving]
